FAERS Safety Report 25928793 (Version 1)
Quarter: 2025Q4

REPORT INFORMATION
  Report Type: Spontaneous
  Country: GB (occurrence: None)
  Receive Date: 20251016
  Receipt Date: 20251016
  Transmission Date: 20260119
  Serious: Yes (Other)
  Sender: ORGANON
  Company Number: None

PATIENT
  Age: 75 Year
  Sex: Female
  Weight: 128 kg

DRUGS (1)
  1. HYDROCHLOROTHIAZIDE\LOSARTAN POTASSIUM [Suspect]
     Active Substance: HYDROCHLOROTHIAZIDE\LOSARTAN POTASSIUM
     Indication: Hypertension
     Dosage: 100MG 12.5MG

REACTIONS (2)
  - Rectal haemorrhage [Recovering/Resolving]
  - Haemorrhoids [Unknown]

NARRATIVE: CASE EVENT DATE: 20251004
